FAERS Safety Report 11393899 (Version 1)
Quarter: 2015Q3

REPORT INFORMATION
  Report Type: Spontaneous
  Country: GB (occurrence: GB)
  Receive Date: 20150819
  Receipt Date: 20150819
  Transmission Date: 20151125
  Serious: Yes (Disabling)
  Sender: FDA-Public Use
  Company Number: GB-ACCORD-033013

PATIENT
  Age: 75 Year
  Sex: Female
  Weight: 79 kg

DRUGS (6)
  1. AMLODIPINE [Suspect]
     Active Substance: AMLODIPINE BESYLATE
     Indication: HYPERTENSION
     Dosage: RECEIVED 5 MG ONCE DAILY FROM 19-JUN-2014 TO DEC-2014.
     Route: 048
     Dates: start: 201412, end: 20150708
  2. CALCIPOTRIOL [Concomitant]
     Active Substance: CALCIPOTRIENE
  3. LISINOPRIL. [Concomitant]
     Active Substance: LISINOPRIL
  4. OMEPRAZOLE. [Concomitant]
     Active Substance: OMEPRAZOLE
  5. BETAMETHASONE. [Concomitant]
     Active Substance: BETAMETHASONE
  6. FLUTICASONE [Concomitant]
     Active Substance: FLUTICASONE\FLUTICASONE PROPIONATE

REACTIONS (1)
  - Tendonitis [Recovered/Resolved]

NARRATIVE: CASE EVENT DATE: 201501
